FAERS Safety Report 4652652-9 (Version None)
Quarter: 2005Q2

REPORT INFORMATION
  Report Type: 
  Country: None (occurrence: None)
  Receive Date: 20050408
  Receipt Date: 20041228
  Transmission Date: 20051028
  Serious: No
  Sender: FDA-Public Use
  Company Number: 236185K04USA

PATIENT
  Age: 46 Year
  Sex: Female

DRUGS (2)
  1. REBIF [Suspect]
     Indication: MULTIPLE SCLEROSIS
     Dosage: 4.4 MCG, 3 IN 1 WEEKS, SUBCTANEOUS
     Route: 058
     Dates: end: 20030514
  2. REBIF [Suspect]
     Indication: MULTIPLE SCLEROSIS
     Dosage: 4.4 MCG, 3 IN 1 WEEKS, SUBCTANEOUS
     Route: 058
     Dates: start: 20041128

REACTIONS (6)
  - HEADACHE [None]
  - INFLUENZA LIKE ILLNESS [None]
  - INJECTION SITE ERYTHEMA [None]
  - MUSCLE SPASTICITY [None]
  - MUSCULOSKELETAL STIFFNESS [None]
  - MYALGIA [None]
